FAERS Safety Report 11755848 (Version 1)
Quarter: 2015Q4

REPORT INFORMATION
  Report Type: Spontaneous
  Country: US (occurrence: US)
  Receive Date: 20151119
  Receipt Date: 20151119
  Transmission Date: 20160304
  Serious: No
  Sender: FDA-Public Use
  Company Number: US-BAYER-2015-453002

PATIENT
  Age: 66 Year
  Sex: Male

DRUGS (1)
  1. CIPRO [Suspect]
     Active Substance: CIPROFLOXACIN HYDROCHLORIDE
     Indication: EPIDIDYMITIS
     Dosage: 1 DF, BID
     Route: 048
     Dates: start: 20151022

REACTIONS (4)
  - Facial pain [Unknown]
  - Lymph node pain [Unknown]
  - Lymphadenopathy [Unknown]
  - Swelling face [Unknown]

NARRATIVE: CASE EVENT DATE: 20151024
